FAERS Safety Report 20908507 (Version 1)
Quarter: 2022Q2

REPORT INFORMATION
  Report Type: Spontaneous
  Country: DE (occurrence: DE)
  Receive Date: 20220603
  Receipt Date: 20220603
  Transmission Date: 20220721
  Serious: Yes (Hospitalization, Other)
  Sender: FDA-Public Use
  Company Number: DE-MLMSERVICE-20220516-3560494-2

PATIENT
  Age: 63 Year
  Sex: Male

DRUGS (10)
  1. CLOZAPINE [Interacting]
     Active Substance: CLOZAPINE
     Indication: Schizophrenia
     Dosage: 100 MILLIGRAM, ONCE A DAY
     Route: 065
  2. CLOZAPINE [Interacting]
     Active Substance: CLOZAPINE
     Dosage: 650 MILLIGRAM, ONCE A DAY
     Route: 065
  3. CLOZAPINE [Interacting]
     Active Substance: CLOZAPINE
     Dosage: 850 MILLIGRAM, ONCE A DAY
     Route: 065
  4. CARIPRAZINE [Interacting]
     Active Substance: CARIPRAZINE
     Indication: Schizophrenia
     Dosage: 3 MILLIGRAM, ONCE A DAY
     Route: 065
  5. CARIPRAZINE [Interacting]
     Active Substance: CARIPRAZINE
     Dosage: 1.5 MILLIGRAM, ONCE A DAY
     Route: 065
  6. AMISULPRIDE [Concomitant]
     Active Substance: AMISULPRIDE
     Indication: Schizophrenia
     Dosage: 200 MILLIGRAM, ONCE A DAY
     Route: 065
  7. MIRTAZAPINE [Concomitant]
     Active Substance: MIRTAZAPINE
     Indication: Schizophrenia
     Dosage: 30 MILLIGRAM, ONCE A DAY
     Route: 065
  8. PIPAMPERONE [Concomitant]
     Active Substance: PIPAMPERONE
     Indication: Schizophrenia
     Dosage: 140 MILLIGRAM, ONCE A DAY
     Route: 065
  9. PIRENZEPINE [Concomitant]
     Active Substance: PIRENZEPINE
     Indication: Schizophrenia
     Dosage: 100 MILLIGRAM, ONCE A DAY
     Route: 065
  10. VALPROIC ACID [Concomitant]
     Active Substance: VALPROIC ACID
     Indication: Schizophrenia
     Dosage: 2000 MILLIGRAM, ONCE A DAY
     Route: 065

REACTIONS (5)
  - Psychotic disorder [Recovered/Resolved]
  - Antipsychotic drug level increased [Recovered/Resolved]
  - Extrapyramidal disorder [Recovered/Resolved]
  - Drug interaction [Recovered/Resolved]
  - Pleurothotonus [Recovered/Resolved]
